FAERS Safety Report 11787924 (Version 3)
Quarter: 2016Q1

REPORT INFORMATION
  Report Type: Spontaneous
  Country: AU (occurrence: AU)
  Receive Date: 20151130
  Receipt Date: 20160303
  Transmission Date: 20160525
  Serious: Yes (Death, Other)
  Sender: FDA-Public Use
  Company Number: AU-009507513-1511AUS015335

PATIENT
  Age: 51 Year
  Sex: Male
  Weight: 88 kg

DRUGS (11)
  1. KEYTRUDA [Suspect]
     Active Substance: PEMBROLIZUMAB
     Dosage: UNK
     Dates: start: 20151027
  2. PANAFCORTELONE [Concomitant]
     Active Substance: PREDNISOLONE
     Indication: SUPPLEMENTATION THERAPY
     Dosage: 2 TABLETS DAILY AT LUNCH
     Route: 048
  3. CREON [Concomitant]
     Active Substance: PANCRELIPASE AMYLASE\PANCRELIPASE LIPASE\PANCRELIPASE PROTEASE
     Dosage: STRENGTH REPORTED AS 10000 BP UNITS; ONE TO TWO CAPSULES 4 TIMES A DAY WHEN REQUIRED
     Route: 048
  4. POLYETHYLENE GLYCOL 3350 (+) POTASSIUM CHLORIDE (+) SODIUM BICARBONATE [Concomitant]
     Active Substance: POLYETHYLENE GLYCOL 3350\POTASSIUM CHLORIDE\SODIUM BICARBONATE\SODIUM CHLORIDE
  5. PHENERGAN [Concomitant]
     Active Substance: PROMETHAZINE HYDROCHLORIDE
     Indication: ANTIALLERGIC THERAPY
     Dosage: 1 TO 2 TABLETS AT NIGHT WHEN REQUIRED
     Route: 048
  6. CREON [Concomitant]
     Active Substance: PANCRELIPASE AMYLASE\PANCRELIPASE LIPASE\PANCRELIPASE PROTEASE
     Indication: PANCREATIC ENZYMES DECREASED
     Dosage: STRENGTH REPORTED AS 25000 BP UNITS; 2 CAPSULES 3 TIMES A DAY
     Route: 048
  7. KEYTRUDA [Suspect]
     Active Substance: PEMBROLIZUMAB
     Indication: CLEAR CELL RENAL CELL CARCINOMA
     Dosage: UNK
     Dates: start: 20151001
  8. KEYTRUDA [Suspect]
     Active Substance: PEMBROLIZUMAB
     Dosage: 100 MG, Q3W, 2X2
     Route: 042
     Dates: start: 20151009
  9. SOMAC [Concomitant]
     Active Substance: PANTOPRAZOLE SODIUM
     Indication: ANTACID THERAPY
     Dosage: ONE TABLET AT NIGHT
     Route: 048
  10. DOCUSATE SODIUM (+) SENNA [Concomitant]
     Indication: CONSTIPATION
     Dosage: 2 DF, QAM
     Route: 048
  11. EUTROXSIG [Concomitant]
     Active Substance: LEVOTHYROXINE SODIUM
     Indication: THYROID HORMONE REPLACEMENT THERAPY
     Dosage: 1 TABLET DAILY ON AN EMPTY STOMACH
     Route: 048

REACTIONS (2)
  - Product use issue [Unknown]
  - Disease progression [Fatal]

NARRATIVE: CASE EVENT DATE: 20151009
